FAERS Safety Report 9192669 (Version 3)
Quarter: 2013Q1

REPORT INFORMATION
  Report Type: Spontaneous
  Country: GB (occurrence: None)
  Receive Date: 20130325
  Receipt Date: 20130329
  Transmission Date: 20140127
  Serious: Yes (Other)
  Sender: FDA-Public Use
  Company Number: AUR-APL-2013-02463

PATIENT
  Age: 29 Year
  Sex: Male
  Weight: 82.5 kg

DRUGS (2)
  1. CITALOPRAM (CITALOPRAM) [Suspect]
     Indication: DEPRESSED MOOD
     Dosage: (30 MG, 1 IN 1 D)
     Route: 048
  2. COPAXONE (GLATIRAMER ACETATE) [Suspect]
     Dosage: (1 IN 1 D)
     Route: 058
     Dates: start: 20121001

REACTIONS (4)
  - Ejaculation disorder [None]
  - Sexual dysfunction [None]
  - Erectile dysfunction [None]
  - Dyspareunia [None]
